FAERS Safety Report 10394157 (Version 1)
Quarter: 2014Q3

REPORT INFORMATION
  Report Type: Spontaneous
  Country: JP (occurrence: JP)
  Receive Date: 20140819
  Receipt Date: 20140819
  Transmission Date: 20150326
  Serious: Yes (Other)
  Sender: FDA-Public Use
  Company Number: PHHY2012JP133986

PATIENT
  Age: 82 Year
  Sex: Female

DRUGS (1)
  1. EXJADE [Suspect]
     Active Substance: DEFERASIROX
     Indication: MYELOFIBROSIS
     Dosage: 250 MG, PER DAY
     Dates: start: 20121011

REACTIONS (2)
  - Condition aggravated [Unknown]
  - Myelofibrosis [Unknown]
